FAERS Safety Report 11905982 (Version 4)
Quarter: 2017Q2

REPORT INFORMATION
  Report Type: Spontaneous
  Country: CA (occurrence: CA)
  Receive Date: 20160111
  Receipt Date: 20170414
  Transmission Date: 20170829
  Serious: Yes (Death, Hospitalization, Other)
  Sender: FDA-Public Use
  Company Number: CA-ROCHE-1691741

PATIENT
  Age: 73 Year
  Sex: Female

DRUGS (2)
  1. XOLAIR [Suspect]
     Active Substance: OMALIZUMAB
     Indication: ASTHMA
     Route: 058
     Dates: start: 20140624
  2. XOLAIR [Suspect]
     Active Substance: OMALIZUMAB
     Route: 058
     Dates: start: 20160927

REACTIONS (12)
  - Dyspnoea [Unknown]
  - Feeling abnormal [Unknown]
  - Gait disturbance [Unknown]
  - Death [Fatal]
  - Fall [Unknown]
  - Large intestine polyp [Unknown]
  - Impaired healing [Unknown]
  - Postoperative wound infection [Unknown]
  - Respiratory distress [Unknown]
  - Chest discomfort [Unknown]
  - Pain in extremity [Unknown]
  - Sleep apnoea syndrome [Unknown]

NARRATIVE: CASE EVENT DATE: 201512
